FAERS Safety Report 8877401 (Version 1)
Quarter: 2012Q4

REPORT INFORMATION
  Report Type: Spontaneous
  Country: US (occurrence: None)
  Receive Date: 20121026
  Receipt Date: 20121026
  Transmission Date: 20130627
  Serious: Yes (Other)
  Sender: FDA-Public Use
  Company Number: TPA2012A08051

PATIENT
  Age: 63 Year
  Sex: Female
  Weight: 59.88 kg

DRUGS (7)
  1. ULORIC (FEBUXOSTAT) [Suspect]
     Indication: URIC ACID INCREASED
  2. LIPITOR (ATORVASTATIN CALCIUM) [Suspect]
     Indication: HIGH CHOLESTEROL
     Dates: end: 1999
  3. GLYBURIDE (GLIBENCLAMIDE) [Suspect]
  4. METFORMIN (METFORMIN) [Suspect]
  5. NEXIUM (ESOMEPRAZOLE MAGNESIUM) [Concomitant]
  6. METOPROLOL (METOPROLOL) [Concomitant]
  7. PERCOCET (PARACETAMOL, OXYCODONE HYDROCHLORIDE) [Concomitant]

REACTIONS (3)
  - Skin cancer [None]
  - Blood uric acid increased [None]
  - Blood glucose increased [None]
